FAERS Safety Report 24937512 (Version 1)
Quarter: 2025Q1

REPORT INFORMATION
  Report Type: Spontaneous
  Country: US (occurrence: US)
  Receive Date: 20250206
  Receipt Date: 20250206
  Transmission Date: 20250409
  Serious: Yes (Other)
  Sender: MERCK
  Company Number: US-009507513-2502USA001875

PATIENT
  Age: 54 Year
  Sex: Male

DRUGS (1)
  1. WINREVAIR [Suspect]
     Active Substance: SOTATERCEPT-CSRK
     Indication: Pulmonary arterial hypertension
     Dosage: 7 MILLIGRAM/KILOGRAM, Q3W
     Route: 058

REACTIONS (2)
  - Rectal haemorrhage [Recovered/Resolved]
  - Overdose [Unknown]
